FAERS Safety Report 5101258-6 (Version None)
Quarter: 2006Q3

REPORT INFORMATION
  Report Type: 
  Country: None (occurrence: None)
  Receive Date: 20060906
  Receipt Date: 20060824
  Transmission Date: 20061208
  Serious: Yes (Other)
  Sender: FDA-Public Use
  Company Number: 2006092923

PATIENT
  Age: 78 Year
  Sex: Male

DRUGS (2)
  1. SULPERAZON (SULBACTAM, CEFOPERAZONE) [Suspect]
     Indication: DRUG USE FOR UNKNOWN INDICATION
     Dosage: 2 GRAM, INTRAVENOUS
     Route: 042
     Dates: start: 20060715, end: 20060717
  2. TWINPAL (CARBOHYDRATES  NOS, ELECTROLYTES NOS, PROTEINS NOS) [Concomitant]

REACTIONS (1)
  - INTERSTITIAL LUNG DISEASE [None]
